FAERS Safety Report 18670599 (Version 1)
Quarter: 2020Q4

REPORT INFORMATION
  Report Type: Spontaneous
  Country: IN (occurrence: IN)
  Receive Date: 20201228
  Receipt Date: 20201228
  Transmission Date: 20210114
  Serious: Yes (Life-Threatening, Other)
  Sender: FDA-Public Use
  Company Number: IN-PFIZER INC-2020499830

PATIENT
  Age: 36 Year
  Sex: Female

DRUGS (3)
  1. NORADRENALINE (NORPINEPHRINE) [Concomitant]
     Active Substance: NOREPINEPHRINE
     Indication: VENA CAVA INJURY
     Dosage: UNK (INFUSION, 0.6 UG/KG/MIN)
  2. MITOMYCIN C [Suspect]
     Active Substance: MITOMYCIN
     Indication: PSEUDOMYXOMA PERITONEI
     Dosage: 20 MG (FOR 45 MIN)
  3. DOXORUBICIN HCL [Suspect]
     Active Substance: DOXORUBICIN HYDROCHLORIDE
     Indication: PSEUDOMYXOMA PERITONEI
     Dosage: 20 MG

REACTIONS (1)
  - Cardiac arrest [Recovering/Resolving]
